FAERS Safety Report 4717106-X (Version None)
Quarter: 2005Q3

REPORT INFORMATION
  Report Type: 
  Country: None (occurrence: None)
  Receive Date: 20050715
  Receipt Date: 20050714
  Transmission Date: 20060218
  Serious: Yes (Other)
  Sender: FDA-Public Use
  Company Number: 805#1#2005-00052

PATIENT
  Age: 0 Year
  Sex: Female

DRUGS (1)
  1. ALPROSTADIL [Suspect]
     Indication: PATENT DUCTUS ARTERIOSUS
     Route: 041

REACTIONS (2)
  - APNOEA [None]
  - CONVULSION [None]
